FAERS Safety Report 9551364 (Version 1)
Quarter: 2013Q3

REPORT INFORMATION
  Report Type: Spontaneous
  Country: US (occurrence: None)
  Receive Date: 20130724
  Receipt Date: 20130724
  Transmission Date: 20140515
  Serious: Yes (Hospitalization)
  Sender: FDA-Public Use
  Company Number: PHEH2012US017792

PATIENT
  Age: 84 Year
  Sex: Male
  Weight: 158 kg

DRUGS (7)
  1. GLEEVEC (IMATINIB) UNKNOWN [Suspect]
     Indication: GASTROINTESTINAL STROMAL TUMOUR
     Route: 048
     Dates: start: 20120811, end: 20121019
  2. CENTRUM (MINERALS NOS, VITAMINS NOS) [Concomitant]
  3. BICALUTAMIDE (BICALUTAMIDE) [Concomitant]
  4. LEVOTIL (LEVOCETIRIZINE DIHYDROCHLORIDE) [Concomitant]
  5. SULOSIN (TAMSULOSIN HYDROCHLORIDE) [Concomitant]
  6. BABY ASPIRIN (ACETYLSALICYLIC ACID) [Concomitant]
  7. ATORVASTATIN (ATORVASTATIN) [Concomitant]

REACTIONS (17)
  - Rash generalised [None]
  - Erythema [None]
  - Hand deformity [None]
  - Periorbital disorder [None]
  - Pain [None]
  - Nausea [None]
  - Periorbital oedema [None]
  - Vomiting [None]
  - Weight increased [None]
  - Muscle spasms [None]
  - Constipation [None]
  - Proctalgia [None]
  - Oedema peripheral [None]
  - Rash [None]
  - Skin fissures [None]
  - Rash maculo-papular [None]
  - Rash pruritic [None]
